FAERS Safety Report 4322408-5 (Version None)
Quarter: 2004Q1

REPORT INFORMATION
  Report Type: 
  Country: None (occurrence: None)
  Receive Date: 20040319
  Receipt Date: 20040308
  Transmission Date: 20041129
  Serious: Yes (Hospitalization)
  Sender: FDA-Public Use
  Company Number: 2004203327NO

PATIENT
  Sex: Male

DRUGS (2)
  1. BEXTRA [Suspect]
     Indication: MUSCLE STRAIN
     Dosage: SEE IMAGE
     Route: 048
     Dates: start: 20040301, end: 20040301
  2. BEXTRA [Suspect]
     Indication: MUSCLE STRAIN
     Dosage: SEE IMAGE
     Route: 048
     Dates: start: 20040302, end: 20040304

REACTIONS (5)
  - GASTRIC ULCER [None]
  - HEADACHE [None]
  - PRURITUS [None]
  - RASH [None]
  - WOUND [None]
